FAERS Safety Report 17411984 (Version 1)
Quarter: 2020Q1

REPORT INFORMATION
  Report Type: Spontaneous
  Country: US (occurrence: US)
  Receive Date: 20200129
  Receipt Date: 20200129
  Transmission Date: 20200409
  Serious: Yes (Hospitalization)
  Sender: FDA-Public Use
  Company Number: None

PATIENT
  Age: 28 Year
  Sex: Male

DRUGS (1)
  1. NEULASTA [Suspect]
     Active Substance: PEGFILGRASTIM
     Indication: AGRANULOCYTOSIS
     Dosage: ?          OTHER FREQUENCY:EVERY21DAYS ;?
     Route: 058
     Dates: start: 20191213

REACTIONS (1)
  - Mobility decreased [None]

NARRATIVE: CASE EVENT DATE: 20200128
